APPROVED DRUG PRODUCT: VELOSEF
Active Ingredient: CEPHRADINE
Strength: 1GM
Dosage Form/Route: TABLET;ORAL
Application: N050530 | Product #001
Applicant: BRISTOL MYERS SQUIBB CO
Approved: Approved Prior to Jan 1, 1982 | RLD: No | RS: No | Type: DISCN